FAERS Safety Report 7812002-3 (Version None)
Quarter: 2011Q4

REPORT INFORMATION
  Report Type: 
  Country: None (occurrence: None)
  Receive Date: 20111011
  Receipt Date: 20110930
  Transmission Date: 20120403
  Serious: Yes (Other)
  Sender: FDA-Public Use
  Company Number: 2011P1008144

PATIENT
  Age: 74 Year
  Sex: Female
  Weight: 52.6173 kg

DRUGS (9)
  1. HYDROCHLOROTHIAZIDE [Suspect]
     Indication: DRUG THERAPY
     Dosage: 25 MG;QD;PO
     Route: 048
  2. HYDROCHLOROTHIAZIDE [Suspect]
     Indication: DRUG THERAPY
     Dosage: 25 MG;QD;PO
     Route: 048
     Dates: end: 20110722
  3. HYDROCHLOROTHIAZIDE [Suspect]
     Indication: DRUG THERAPY
     Dates: start: 20100901
  4. GLUCOSAMINE CHONDROITIN [Concomitant]
  5. MULTI-VITAMIN [Concomitant]
  6. CHONDROITIN PROBIOTIC [Concomitant]
  7. ENALAPRIL MALEATE [Concomitant]
  8. CRANBERRY PILL [Concomitant]
  9. CALCIUM CARBONATE [Concomitant]

REACTIONS (5)
  - CATARACT [None]
  - RETINAL DISORDER [None]
  - VISUAL ACUITY REDUCED [None]
  - ROTATOR CUFF SYNDROME [None]
  - ELECTRIC SHOCK [None]
